FAERS Safety Report 9182603 (Version 1)
Quarter: 2012Q4

REPORT INFORMATION
  Report Type: 
  Country: CH (occurrence: CH)
  Receive Date: 20121030
  Receipt Date: 20121030
  Transmission Date: 20130627
  Serious: Yes (Hospitalization)
  Sender: FDA-Public Use
  Company Number: CH-BRISTOL-MYERS SQUIBB COMPANY-17062928

PATIENT
  Age: 44 Year
  Sex: Male

DRUGS (2)
  1. STOCRIN TABS [Suspect]
     Indication: HIV INFECTION
     Route: 048
     Dates: start: 20120720, end: 20120731
  2. KIVEXA [Suspect]
     Indication: HIV INFECTION
     Dosage: Kivexa film coated tabs 300/600 mg
     Route: 048
     Dates: start: 20120720, end: 20120731

REACTIONS (6)
  - Drug reaction with eosinophilia and systemic symptoms [Recovering/Resolving]
  - Pyrexia [Recovering/Resolving]
  - Rash [Recovering/Resolving]
  - Vomiting [Recovering/Resolving]
  - Chills [Recovering/Resolving]
  - IgA nephropathy [Unknown]
